FAERS Safety Report 8736158 (Version 2)
Quarter: 2012Q4

REPORT INFORMATION
  Report Type: Spontaneous
  Country: JP (occurrence: None)
  Receive Date: 20120803
  Receipt Date: 20120816
  Transmission Date: 20130627
  Serious: Yes (Other)
  Sender: FDA-Public Use
  Company Number: 2012P1052124

PATIENT
  Age: 71 Year
  Sex: Female

DRUGS (11)
  1. ZANTAC [Suspect]
     Dosage: ,50 MG;BIW;IV,50 MG;BIW;IV
     Route: 042
     Dates: start: 20120607, end: 20120607
  2. ZANTAC [Suspect]
     Dosage: ,50 MG;BIW;IV,50 MG;BIW;IV
     Route: 042
     Dates: start: 20120621, end: 20120621
  3. ZANTAC [Suspect]
     Dosage: ,50 MG;BIW;IV,50 MG;BIW;IV
     Route: 042
     Dates: start: 20120719, end: 20120719
  4. DECADRON [Suspect]
     Dosage: 0.3 MG;BIW;IV,0.3 MG;BIW;IV,0.3 MG;BIW;IV
     Route: 042
     Dates: start: 20120607, end: 20120607
  5. DECADRON [Suspect]
     Dosage: 0.3 MG;BIW;IV,0.3 MG;BIW;IV,0.3 MG;BIW;IV
     Route: 042
     Dates: start: 20120621, end: 20120621
  6. DECADRON [Suspect]
     Dosage: 0.3 MG;BIW;IV,0.3 MG;BIW;IV,0.3 MG;BIW;IV
     Route: 042
     Dates: start: 20120719, end: 20120719
  7. CELESTAMINE [Concomitant]
  8. RAMOSETRON [Concomitant]
  9. HYDROCHLORIDE [Concomitant]
  10. PACLITAXEL [Concomitant]
  11. CARBOPLATIN [Concomitant]

REACTIONS (4)
  - COLD SWEAT [None]
  - PALPITATIONS [None]
  - NAUSEA [None]
  - SHOCK [None]
